FAERS Safety Report 4994450-2 (Version None)
Quarter: 2006Q2

REPORT INFORMATION
  Report Type: 
  Country: None (occurrence: None)
  Receive Date: 20060503
  Receipt Date: 20060420
  Transmission Date: 20061013
  Serious: Yes (Hospitalization)
  Sender: FDA-Public Use
  Company Number: 2006055070

PATIENT
  Age: 30 Year
  Sex: Male

DRUGS (8)
  1. SERTRALINE [Suspect]
     Indication: ILL-DEFINED DISORDER
     Dosage: 50 MG
  2. TRAZODONE HCL [Suspect]
     Indication: ILL-DEFINED DISORDER
     Dosage: 50 MG (AT BEDTIME),
  3. SULFAMETHOXAZOLE + TRIMETHOPRIM [Suspect]
     Indication: ILL-DEFINED DISORDER
     Dosage: 160MGTRIMETHOPRIM/800MGSULFAMETHOXAZOLE, ORAL
     Route: 048
  4. DIVALPROEX SODIUM [Suspect]
     Indication: BIPOLAR DISORDER
     Dosage: 750 MG (3 IN 1 D),
  5. KALETRA [Suspect]
     Indication: HIV ANTIBODY POSITIVE
     Dosage: 266 MG LOPINAVIR/66MG RITONAVIR (2 IN 1 D), ORAL
     Route: 048
  6. PAROXETINE [Suspect]
     Indication: ILL-DEFINED DISORDER
     Dosage: 10 MG
  7. LAMIVUDINE AND ZIDOVUDINE [Concomitant]
  8. AZITHROMYCIN [Concomitant]

REACTIONS (6)
  - ANTICONVULSANT DRUG LEVEL BELOW THERAPEUTIC [None]
  - CONDITION AGGRAVATED [None]
  - DRUG INTERACTION [None]
  - MAJOR DEPRESSION [None]
  - MANIA [None]
  - REFUSAL OF TREATMENT BY PATIENT [None]
